FAERS Safety Report 25766589 (Version 1)
Quarter: 2025Q3

REPORT INFORMATION
  Report Type: Spontaneous
  Country: US (occurrence: US)
  Receive Date: 20250905
  Receipt Date: 20250905
  Transmission Date: 20251020
  Serious: No
  Sender: DR REDDYS
  Company Number: US-DRL-USA-USA/2025/08/013012

PATIENT
  Sex: Female

DRUGS (1)
  1. CLONIDINE [Suspect]
     Active Substance: CLONIDINE
     Indication: Blood pressure measurement

REACTIONS (3)
  - Skin irritation [Not Recovered/Not Resolved]
  - Erythema [Not Recovered/Not Resolved]
  - Burning sensation [Not Recovered/Not Resolved]
